FAERS Safety Report 8395561 (Version 2)
Quarter: 2012Q4

REPORT INFORMATION
  Report Type: 
  Country: US (occurrence: US)
  Receive Date: 20120208
  Receipt Date: 20121029
  Transmission Date: 20130627
  Serious: Yes (Other)
  Sender: FDA-Public Use
  Company Number: US-ROCHE-1036581

PATIENT
  Sex: Male
  Weight: 70.37 kg

DRUGS (3)
  1. ACCUTANE [Suspect]
     Indication: ACNE
     Route: 065
     Dates: start: 199007
  2. ACCUTANE [Suspect]
     Route: 065
     Dates: start: 19900801, end: 19970331
  3. TETRACYCLINE [Concomitant]
     Route: 065
     Dates: start: 1990

REACTIONS (2)
  - Colitis [Unknown]
  - Injury [Unknown]
